FAERS Safety Report 15109053 (Version 3)
Quarter: 2018Q3

REPORT INFORMATION
  Report Type: Report from Study
  Country: IT (occurrence: IT)
  Receive Date: 20180705
  Receipt Date: 20180901
  Transmission Date: 20181010
  Serious: Yes (Other)
  Sender: FDA-Public Use
  Company Number: IT-AUROBINDO-AUR-APL-2017-38274

PATIENT
  Age: 56 Year
  Sex: Female

DRUGS (9)
  1. BACAMPICILLIN [Suspect]
     Active Substance: BACAMPICILLIN
     Indication: PRODUCT USED FOR UNKNOWN INDICATION
  2. PANACEF [Suspect]
     Active Substance: CEFACLOR
     Indication: PRODUCT USED FOR UNKNOWN INDICATION
     Dosage: UNK
     Route: 023
  3. PANACEF [Suspect]
     Active Substance: CEFACLOR
     Dosage: 2 DOSAGE FORM, 2MG/ML IN 0.9% SODIUM CHLORIDE
     Route: 023
  4. BACAMPICILLIN [Suspect]
     Active Substance: BACAMPICILLIN
     Indication: PRODUCT USED FOR UNKNOWN INDICATION
     Dosage: UNK
     Route: 065
  5. KEFORAL                            /00145501/ [Suspect]
     Active Substance: CEPHALEXIN
     Dosage: 2 MG/ML, 2MG/ML IN 0.9% SODIUM CHLORIDE
     Route: 023
  6. DURACEF                            /00554701/ [Suspect]
     Active Substance: CEFADROXIL
     Indication: PRODUCT USED FOR UNKNOWN INDICATION
     Dosage: UNK
     Route: 023
  7. DURACEF                            /00554701/ [Suspect]
     Active Substance: CEFADROXIL
     Dosage: 2 DOSAGE FORM, 2MG/ML IN 0.9% SODIUM CHLORIDE
     Route: 023
  8. KEFORAL                            /00145501/ [Suspect]
     Active Substance: CEPHALEXIN
     Indication: PRODUCT USED FOR UNKNOWN INDICATION
     Dosage: UNK
     Route: 023
  9. AMOXICILLIN. [Suspect]
     Active Substance: AMOXICILLIN
     Indication: PRODUCT USED FOR UNKNOWN INDICATION
     Dosage: UNK
     Route: 065

REACTIONS (5)
  - Therapeutic product cross-reactivity [Unknown]
  - Erythema [Unknown]
  - Oedema [Unknown]
  - Type IV hypersensitivity reaction [Unknown]
  - Rash maculo-papular [Unknown]
